FAERS Safety Report 6888442-6 (Version None)
Quarter: 2010Q3

REPORT INFORMATION
  Report Type: 
  Country: None (occurrence: None)
  Receive Date: 20100730
  Receipt Date: 20091027
  Transmission Date: 20110219
  Serious: Yes (Hospitalization)
  Sender: FDA-Public Use
  Company Number: DE-ABBOTT-10P-044-0660056-00

PATIENT
  Age: 22 Year
  Sex: Male

DRUGS (18)
  1. AKINETON [Suspect]
     Indication: PRODUCT USED FOR UNKNOWN INDICATION
     Route: 048
     Dates: start: 20070307, end: 20070405
  2. AKINETON [Suspect]
     Route: 048
     Dates: start: 20070406, end: 20070417
  3. AKINETON [Suspect]
     Route: 048
     Dates: start: 20070418, end: 20070504
  4. FLUANXOL [Suspect]
     Indication: PRODUCT USED FOR UNKNOWN INDICATION
     Route: 048
     Dates: start: 20070321, end: 20070326
  5. FLUANXOL [Suspect]
     Route: 048
     Dates: start: 20070327, end: 20070401
  6. FLUANXOL [Suspect]
     Route: 048
     Dates: start: 20070402, end: 20070405
  7. FLUANXOL [Suspect]
     Route: 048
     Dates: start: 20070406, end: 20070410
  8. FLUANXOL [Suspect]
     Route: 048
     Dates: start: 20070411, end: 20070419
  9. FLUANXOL [Suspect]
     Route: 048
     Dates: start: 20070720, end: 20070720
  10. LEPONEX [Suspect]
     Indication: PRODUCT USED FOR UNKNOWN INDICATION
     Route: 048
     Dates: start: 20070417, end: 20070417
  11. LEPONEX [Suspect]
     Route: 048
     Dates: start: 20070418, end: 20070419
  12. LEPONEX [Suspect]
     Route: 048
     Dates: start: 20070420, end: 20070422
  13. LEPONEX [Suspect]
     Route: 048
     Dates: start: 20070423, end: 20070423
  14. LEPONEX [Suspect]
     Route: 048
     Dates: start: 20070621
  15. LEPONEX [Suspect]
     Route: 048
     Dates: start: 20070505
  16. LEPONEX [Suspect]
     Route: 048
     Dates: start: 20070411, end: 20070420
  17. SOLIAN [Suspect]
     Indication: PRODUCT USED FOR UNKNOWN INDICATION
     Route: 048
     Dates: start: 20080418
  18. TRUXAL [Suspect]
     Indication: PRODUCT USED FOR UNKNOWN INDICATION
     Route: 048
     Dates: start: 20070413, end: 20070420

REACTIONS (2)
  - BLOOD CREATINE PHOSPHOKINASE INCREASED [None]
  - MYOPATHY [None]
